FAERS Safety Report 15188873 (Version 1)
Quarter: 2018Q3

REPORT INFORMATION
  Report Type: Spontaneous
  Country: US (occurrence: US)
  Receive Date: 20180724
  Receipt Date: 20180724
  Transmission Date: 20181010
  Serious: Yes (Other)
  Sender: FDA-Public Use
  Company Number: US-ACCORD-069914

PATIENT
  Age: 35 Year
  Sex: Male

DRUGS (5)
  1. VINCRISTINE [Suspect]
     Active Substance: VINCRISTINE
     Indication: EWING^S SARCOMA RECURRENT
     Dates: start: 201603
  2. ETOPOSIDE. [Suspect]
     Active Substance: ETOPOSIDE
     Indication: EWING^S SARCOMA RECURRENT
     Dosage: TOTAL THREE DOSES (DAYS 2, 3, 4)
     Route: 042
     Dates: start: 201507
  3. DACTINOMYCIN [Suspect]
     Active Substance: DACTINOMYCIN
     Indication: EWING^S SARCOMA RECURRENT
     Dates: start: 201603
  4. CYCLOPHOSPHAMIDE/CYCLOPHOSPHAMIDE MONOHYDRATE [Suspect]
     Active Substance: CYCLOPHOSPHAMIDE
     Indication: EWING^S SARCOMA RECURRENT
     Dates: start: 201603
  5. MELPHALAN. [Suspect]
     Active Substance: MELPHALAN
     Indication: EWING^S SARCOMA RECURRENT
     Dosage: ONE DOSE (ON DAY 1)
     Route: 042
     Dates: start: 201507

REACTIONS (11)
  - Clostridium difficile infection [Unknown]
  - Metastases to lung [None]
  - Off label use [Unknown]
  - Febrile neutropenia [Unknown]
  - Mucosal inflammation [Recovered/Resolved]
  - Colitis [Unknown]
  - Liver function test increased [Recovered/Resolved]
  - Stem cell transplant [None]
  - Bone marrow failure [Unknown]
  - Ewing^s sarcoma recurrent [None]
  - Malignant neoplasm progression [None]
